FAERS Safety Report 16000429 (Version 3)
Quarter: 2019Q2

REPORT INFORMATION
  Report Type: Spontaneous
  Country: US (occurrence: US)
  Receive Date: 20190225
  Receipt Date: 20190409
  Transmission Date: 20190711
  Serious: No
  Sender: FDA-Public Use
  Company Number: US-BAYER-2019-039294

PATIENT
  Age: 88 Year
  Sex: Female
  Weight: 64 kg

DRUGS (2)
  1. MIRALAX [Suspect]
     Active Substance: POLYETHYLENE GLYCOL 3350
     Indication: GASTROINTESTINAL DISORDER
     Dosage: 1 DF
     Route: 048
  2. GABAPENTIN. [Concomitant]
     Active Substance: GABAPENTIN
     Dosage: UNK

REACTIONS (6)
  - Incorrect dose administered [Unknown]
  - Frequent bowel movements [Unknown]
  - Diarrhoea [Unknown]
  - Product taste abnormal [None]
  - Product solubility abnormal [None]
  - Burning sensation [Unknown]
